FAERS Safety Report 4861162-5 (Version None)
Quarter: 2005Q4

REPORT INFORMATION
  Report Type: 
  Country: None (occurrence: None)
  Receive Date: 20051220
  Receipt Date: 20051215
  Transmission Date: 20060501
  Serious: Yes (Hospitalization)
  Sender: FDA-Public Use
  Company Number: 2005CG02081

PATIENT
  Age: 50 Year
  Sex: Male

DRUGS (4)
  1. MOPRAL [Suspect]
     Route: 048
     Dates: end: 20050927
  2. LOXAPAC [Suspect]
     Route: 048
     Dates: end: 20050927
  3. KARDEGIC [Suspect]
     Route: 048
     Dates: end: 20050927
  4. DEPAKOTE [Suspect]
     Route: 048
     Dates: end: 20050927

REACTIONS (2)
  - MELAENA [None]
  - THROMBOCYTOPENIA [None]
